FAERS Safety Report 9188472 (Version 1)
Quarter: 2012Q4

REPORT INFORMATION
  Report Type: 
  Country: DE (occurrence: DE)
  Receive Date: 20121205
  Receipt Date: 20121205
  Transmission Date: 20130627
  Serious: Yes (Other)
  Sender: FDA-Public Use
  Company Number: GXKR2012DE003726

PATIENT
  Sex: Female

DRUGS (2)
  1. METHOTREXATE [Suspect]
     Indication: RHEUMATOID ARTHRITIS
     Dosage: 10 mg, QW
     Route: 048
  2. TRAMAL [Concomitant]

REACTIONS (2)
  - Carcinoembryonic antigen increased [Unknown]
  - Glycosylated haemoglobin increased [Unknown]
